FAERS Safety Report 21949383 (Version 3)
Quarter: 2023Q1

REPORT INFORMATION
  Report Type: Report from Study
  Country: GR (occurrence: GR)
  Receive Date: 20230203
  Receipt Date: 20230323
  Transmission Date: 20230418
  Serious: Yes (Hospitalization)
  Sender: FDA-Public Use
  Company Number: GR-ABBVIE-4293017

PATIENT
  Age: 81 Year
  Sex: Male

DRUGS (3)
  1. CARBIDOPA\LEVODOPA [Suspect]
     Active Substance: CARBIDOPA\LEVODOPA
     Indication: Parkinson^s disease
     Dosage: MORNING DOSE: 6.5ML; CONTINUOUS RATE: 2.2ML/H; EXTRA DOSE: 1.2ML
     Route: 050
     Dates: start: 20210622, end: 20230127
  2. CARBIDOPA\LEVODOPA [Suspect]
     Active Substance: CARBIDOPA\LEVODOPA
     Dosage: MORNING DOSE: 6.5ML; CONTINUOUS RATE: 2.2ML/H; EXTRA DOSE: 1.2ML
     Route: 050
     Dates: start: 20230127, end: 20230127
  3. CARBIDOPA\LEVODOPA [Suspect]
     Active Substance: CARBIDOPA\LEVODOPA
     Dosage: FIRST ADMIN DATE: 2023?MORNING DOSE: 6.5ML; CONTINUOUS RATE: 2.0ML/H; EXTRA DOSE: 1.2ML
     Route: 050

REACTIONS (5)
  - Fracture [Recovering/Resolving]
  - Fall [Recovered/Resolved]
  - Blood pressure decreased [Not Recovered/Not Resolved]
  - Bedridden [Recovering/Resolving]
  - Hallucination [Not Recovered/Not Resolved]

NARRATIVE: CASE EVENT DATE: 20230127
